FAERS Safety Report 7966007-2 (Version None)
Quarter: 2011Q4

REPORT INFORMATION
  Report Type: 
  Country: None (occurrence: None)
  Receive Date: 20111208
  Receipt Date: 20111202
  Transmission Date: 20120403
  Serious: Yes (Other)
  Sender: FDA-Public Use
  Company Number: CHPA2011US017185

PATIENT
  Age: 80 Year
  Sex: Female

DRUGS (5)
  1. EXCEDRIN (MIGRAINE) [Suspect]
     Indication: PAIN
     Dosage: UNK , UNK
     Route: 048
     Dates: start: 19820101
  2. DRUG THERAPY NOS [Suspect]
     Indication: NERVOUSNESS
     Route: 065
  3. EXCEDRIN ES BACK + BODY [Suspect]
     Indication: PAIN
     Dosage: 2 DF, BID
     Route: 048
  4. ACTONEL [Suspect]
     Dosage: UNK , UNK
  5. DRUG THERAPY NOS [Suspect]
     Indication: SINUSITIS
     Route: 065

REACTIONS (10)
  - APHAGIA [None]
  - SINUSITIS [None]
  - INCORRECT DRUG ADMINISTRATION DURATION [None]
  - THERAPEUTIC RESPONSE DECREASED [None]
  - FRACTURE [None]
  - DIARRHOEA [None]
  - LOSS OF CONSCIOUSNESS [None]
  - WEIGHT DECREASED [None]
  - HYPERSOMNIA [None]
  - MALAISE [None]
